FAERS Safety Report 15808521 (Version 3)
Quarter: 2019Q1

REPORT INFORMATION
  Report Type: Report from Study
  Country: None (occurrence: NO)
  Receive Date: 20190110
  Receipt Date: 20190220
  Transmission Date: 20190417
  Serious: Yes (Hospitalization)
  Sender: FDA-Public Use
  Company Number: NO-ABBVIE-19P-122-2618890-00

PATIENT
  Age: 55 Year
  Sex: Male

DRUGS (10)
  1. VENETOCLAX. [Suspect]
     Active Substance: VENETOCLAX
     Indication: PLASMA CELL MYELOMA
     Dosage: MOST RECENT DOSE OF VENETOCLAX PRIOR TO AE ONSET: 26/DEC/2018 (800MG,1 IN 1 D)
     Route: 048
     Dates: start: 20181004
  2. ZOMETA [Concomitant]
     Active Substance: ZOLEDRONIC ACID
     Route: 042
  3. CALCIGRAN FORTE (CALCIUM CARBONATE, CHOLECALCIFEROL) [Concomitant]
     Indication: PLASMA CELL MYELOMA
     Route: 048
     Dates: start: 2018
  4. ZOMETA [Concomitant]
     Active Substance: ZOLEDRONIC ACID
     Indication: PRODUCT USED FOR UNKNOWN INDICATION
     Route: 042
     Dates: start: 20180927
  5. ZESTRIL [Concomitant]
     Active Substance: LISINOPRIL
     Indication: HYPERTENSION
     Route: 048
     Dates: start: 201607
  6. COBIMETINIB. [Suspect]
     Active Substance: COBIMETINIB
     Indication: PLASMA CELL MYELOMA
     Dosage: DAYS 1-21 OF EACH 28-DAY CYCLE; MOST RECENT DOSE PRIOR TO AE ONSET 02/JAN/2019
     Route: 048
     Dates: start: 20181004
  7. CELEBRA [Concomitant]
     Active Substance: CELECOXIB
     Indication: BACK PAIN
     Route: 048
     Dates: start: 20181018
  8. ALBYL-E (ASPIRIN, MAGNESIUM OXIDE) [Concomitant]
     Indication: PLASMA CELL MYELOMA
     Route: 048
     Dates: start: 2016
  9. OXYNORM [Concomitant]
     Active Substance: OXYCODONE HYDROCHLORIDE
     Indication: PAIN
     Route: 048
     Dates: start: 201606
  10. IMODIUM [Concomitant]
     Active Substance: LOPERAMIDE HYDROCHLORIDE
     Indication: PRODUCT USED FOR UNKNOWN INDICATION
     Route: 048
     Dates: start: 20181010

REACTIONS (1)
  - Respiratory tract infection [Recovered/Resolved]

NARRATIVE: CASE EVENT DATE: 20190102
